APPROVED DRUG PRODUCT: ETHRANE
Active Ingredient: ENFLURANE
Strength: 99.9% **Federal Register determination that product was not discontinued or withdrawn for safety or effectiveness reasons**
Dosage Form/Route: LIQUID;INHALATION
Application: N017087 | Product #001
Applicant: BAXTER HEALTHCARE CORP
Approved: Approved Prior to Jan 1, 1982 | RLD: No | RS: No | Type: DISCN